FAERS Safety Report 7013048-8 (Version None)
Quarter: 2010Q3

REPORT INFORMATION
  Report Type: 
  Country: None (occurrence: None)
  Receive Date: 20100915
  Receipt Date: 20100503
  Transmission Date: 20110219
  Serious: Yes (Other)
  Sender: FDA-Public Use
  Company Number: US-WYE-H15045710

PATIENT
  Age: 80 Year
  Sex: Male
  Weight: 74 kg

DRUGS (2)
  1. ADVIL [Suspect]
     Indication: ARTHRALGIA
     Dosage: 3X/DAY AS NEEDED, ORAL
     Route: 048
     Dates: start: 20090601
  2. ADVIL [Suspect]
     Indication: BACK PAIN
     Dosage: 3X/DAY AS NEEDED, ORAL
     Route: 048
     Dates: start: 20090601

REACTIONS (1)
  - FLUSHING [None]
